FAERS Safety Report 25225344 (Version 2)
Quarter: 2025Q2

REPORT INFORMATION
  Report Type: Spontaneous
  Country: US (occurrence: US)
  Receive Date: 20250422
  Receipt Date: 20250527
  Transmission Date: 20250716
  Serious: Yes (Hospitalization)
  Sender: TAKEDA
  Company Number: US-TAKEDA-2025TUS036554

PATIENT
  Sex: Female
  Weight: 75 kg

DRUGS (4)
  1. ICATIBANT [Suspect]
     Active Substance: ICATIBANT ACETATE
     Indication: Angioedema
  2. ICATIBANT [Suspect]
     Active Substance: ICATIBANT ACETATE
  3. TAKHZYRO [Suspect]
     Active Substance: LANADELUMAB-FLYO
     Indication: Angioedema
     Dosage: UNK UNK, Q2WEEKS
     Dates: start: 20220224
  4. TAKHZYRO [Suspect]
     Active Substance: LANADELUMAB-FLYO

REACTIONS (1)
  - Drug ineffective [Unknown]
